FAERS Safety Report 5184747-8 (Version None)
Quarter: 2006Q4

REPORT INFORMATION
  Report Type: 
  Country: None (occurrence: None)
  Receive Date: 20061220
  Receipt Date: 20060419
  Transmission Date: 20070319
  Serious: No
  Sender: FDA-Public Use
  Company Number: US-GLAXOSMITHKLINE-A0602410A

PATIENT
  Age: 47 Year
  Sex: Female

DRUGS (2)
  1. NICODERM CQ [Suspect]
     Dates: end: 20060412
  2. NICODERM CQ [Suspect]

REACTIONS (4)
  - CRYING [None]
  - EMOTIONAL DISORDER [None]
  - INSOMNIA [None]
  - SALIVARY HYPERSECRETION [None]
